FAERS Safety Report 5388894-7 (Version None)
Quarter: 2007Q3

REPORT INFORMATION
  Report Type: 
  Country: None (occurrence: None)
  Receive Date: 20070717
  Receipt Date: 20070705
  Transmission Date: 20080115
  Serious: Yes (Other)
  Sender: FDA-Public Use
  Company Number: US-JNJFOC-20070302895

PATIENT
  Sex: Female
  Weight: 116.12 kg

DRUGS (7)
  1. REMICADE [Suspect]
     Route: 042
  2. REMICADE [Suspect]
     Route: 042
  3. REMICADE [Suspect]
     Route: 042
  4. REMICADE [Suspect]
     Indication: CROHN'S DISEASE
     Route: 042
  5. GLUCOTROL [Concomitant]
  6. ALBUTEROL [Concomitant]
  7. BYETTA [Concomitant]

REACTIONS (1)
  - CELLULITIS [None]
